FAERS Safety Report 10931708 (Version 1)
Quarter: 2015Q1

REPORT INFORMATION
  Report Type: Report from Study
  Country: US (occurrence: US)
  Receive Date: 20150319
  Receipt Date: 20150319
  Transmission Date: 20150721
  Serious: Yes (Disabling)
  Sender: FDA-Public Use
  Company Number: US-SA-2015SA014466

PATIENT
  Age: 25 Year
  Sex: Male

DRUGS (1)
  1. AUBAGIO [Suspect]
     Active Substance: TERIFLUNOMIDE
     Indication: MULTIPLE SCLEROSIS
     Route: 048
     Dates: start: 20150107

REACTIONS (5)
  - Lumbar puncture [Unknown]
  - Hypophagia [Unknown]
  - Abdominal discomfort [Unknown]
  - Memory impairment [Unknown]
  - Dysgeusia [Unknown]

NARRATIVE: CASE EVENT DATE: 201501
